FAERS Safety Report 6505906-5 (Version None)
Quarter: 2009Q4

REPORT INFORMATION
  Report Type: 
  Country: None (occurrence: None)
  Receive Date: 20091217
  Receipt Date: 20091217
  Transmission Date: 20100525
  Serious: Yes (Other)
  Sender: FDA-Public Use
  Company Number: None

PATIENT
  Age: 69 Year
  Sex: Female
  Weight: 63.5036 kg

DRUGS (2)
  1. AUGMENTIN '875' [Suspect]
     Indication: SINUSITIS
     Dosage: ONE TABLET 2X DAILY BY MOUTH
     Route: 048
     Dates: start: 20091021, end: 20091028
  2. LEVOTHYROXINE SODIUM [Concomitant]

REACTIONS (2)
  - ABDOMINAL PAIN UPPER [None]
  - CLOSTRIDIUM TEST POSITIVE [None]
